FAERS Safety Report 6426878-8 (Version None)
Quarter: 2009Q4

REPORT INFORMATION
  Report Type: 
  Country: None (occurrence: None)
  Receive Date: 20091030
  Receipt Date: 20091014
  Transmission Date: 20100525
  Serious: Yes (Death, Hospitalization)
  Sender: FDA-Public Use
  Company Number: 1-20423581

PATIENT
  Age: 72 Year
  Sex: Male

DRUGS (2)
  1. AMIODARONE HCL [Suspect]
     Dosage: 200 MG PER DAY, ORAL
     Route: 048
  2. SIMAVASTATIN [Concomitant]

REACTIONS (5)
  - ASCITES [None]
  - DRUG TOXICITY [None]
  - FATIGUE [None]
  - HEPATIC CIRRHOSIS [None]
  - SPLENOMEGALY [None]
